FAERS Safety Report 7088975-6 (Version None)
Quarter: 2010Q4

REPORT INFORMATION
  Report Type: 
  Country: None (occurrence: None)
  Receive Date: 20101029
  Receipt Date: 20090902
  Transmission Date: 20110411
  Serious: Yes (Life-Threatening, Hospitalization)
  Sender: FDA-Public Use
  Company Number: 2009SP023478

PATIENT
  Age: 34 Year
  Sex: Female
  Weight: 85.2762 kg

DRUGS (3)
  1. NUVARING [Suspect]
     Indication: MENSTRUAL DISORDER
     Dates: start: 20070801, end: 20071101
  2. PAXIL CR [Concomitant]
  3. NEXIUM [Concomitant]

REACTIONS (3)
  - DEVICE PHYSICAL PROPERTY ISSUE [None]
  - INTRACARDIAC THROMBUS [None]
  - PULMONARY EMBOLISM [None]
